FAERS Safety Report 17459117 (Version 4)
Quarter: 2023Q4

REPORT INFORMATION
  Report Type: Report from Study
  Country: KR (occurrence: KR)
  Receive Date: 20200225
  Receipt Date: 20231206
  Transmission Date: 20240110
  Serious: Yes (Hospitalization)
  Sender: FDA-Public Use
  Company Number: KR-SUNOVION-2020DSP002872

PATIENT
  Age: 26 Year
  Sex: Male
  Weight: 75.8 kg

DRUGS (56)
  1. QUETIAPINE [Suspect]
     Active Substance: QUETIAPINE
     Indication: Schizophrenia
     Dosage: QUETIAPINE XR 300 MG
     Route: 048
     Dates: start: 20200210, end: 20200214
  2. QUETIAPINE [Suspect]
     Active Substance: QUETIAPINE
     Dosage: QUETIAPINE XR 600 MG
     Route: 048
     Dates: start: 20200215, end: 20200216
  3. BLONANSERIN [Concomitant]
     Active Substance: BLONANSERIN
     Indication: Psychotic symptom
     Dosage: 16 MG
     Route: 048
     Dates: start: 20200215, end: 20200216
  4. BLONANSERIN [Concomitant]
     Active Substance: BLONANSERIN
     Dosage: 12 MG
     Route: 048
     Dates: start: 20200217, end: 20200217
  5. BLONANSERIN [Concomitant]
     Active Substance: BLONANSERIN
     Dosage: 24 MG
     Route: 048
     Dates: start: 20200218, end: 20200224
  6. BLONANSERIN [Concomitant]
     Active Substance: BLONANSERIN
     Dosage: 28 MG
     Route: 048
     Dates: start: 20200225, end: 20200226
  7. BLONANSERIN [Concomitant]
     Active Substance: BLONANSERIN
     Dosage: 28 MG
     Route: 048
     Dates: start: 20200227, end: 20200301
  8. BLONANSERIN [Concomitant]
     Active Substance: BLONANSERIN
     Dosage: 20 MG
     Route: 048
     Dates: start: 20200302, end: 20200311
  9. BLONANSERIN [Concomitant]
     Active Substance: BLONANSERIN
     Dosage: 20 MG
     Route: 048
     Dates: start: 20200312
  10. ATIVAN [Concomitant]
     Active Substance: LORAZEPAM
     Indication: Anxiety
     Dosage: 1.5 MG
     Route: 048
     Dates: start: 20200205, end: 20200214
  11. ATIVAN [Concomitant]
     Active Substance: LORAZEPAM
     Indication: Anxiety
     Dosage: 1.5 MG
     Route: 048
     Dates: start: 20200215, end: 20200216
  12. ATIVAN [Concomitant]
     Active Substance: LORAZEPAM
     Dosage: 2.5 MG
     Route: 048
     Dates: start: 20200217, end: 20200217
  13. ATIVAN [Concomitant]
     Active Substance: LORAZEPAM
     Dosage: 2 MG
     Route: 048
     Dates: start: 20200218, end: 20200305
  14. ATIVAN [Concomitant]
     Active Substance: LORAZEPAM
     Dosage: 0.75 MG
     Route: 048
     Dates: start: 20200306, end: 20200306
  15. ATIVAN [Concomitant]
     Active Substance: LORAZEPAM
     Dosage: 0.5 MG
     Route: 048
     Dates: start: 20200307
  16. ATIVAN [Concomitant]
     Active Substance: LORAZEPAM
     Indication: Psychotic symptom
     Dosage: 2 MG
     Route: 042
     Dates: start: 20200301, end: 20200301
  17. SODIUM CHLORIDE [Concomitant]
     Active Substance: SODIUM CHLORIDE
     Indication: Psychotic symptom
     Dosage: 1000 ML
     Route: 050
     Dates: start: 20200301, end: 20200301
  18. BENZTROPINE [Concomitant]
     Active Substance: BENZTROPINE
     Indication: Psychotic symptom
     Dosage: 1 MG
     Route: 048
     Dates: start: 20200217, end: 20200226
  19. BENZTROPINE [Concomitant]
     Active Substance: BENZTROPINE
     Dosage: 2 MG
     Route: 048
     Dates: start: 20200227, end: 20200317
  20. BENZTROPINE [Concomitant]
     Active Substance: BENZTROPINE
     Dosage: 1 MG
     Route: 048
     Dates: start: 20200318
  21. VALPROATE SODIUM [Concomitant]
     Active Substance: VALPROATE SODIUM
     Indication: Psychotic symptom
     Dosage: 1300 MG
     Route: 048
     Dates: start: 20200301, end: 20200325
  22. VALPROATE SODIUM [Concomitant]
     Active Substance: VALPROATE SODIUM
     Dosage: 1000 MG
     Route: 048
     Dates: start: 20200326
  23. DEPAKOTE ER [Concomitant]
     Active Substance: DIVALPROEX SODIUM
     Indication: Psychotic symptom
     Dosage: 500 MG
     Route: 048
     Dates: start: 20200217, end: 20200217
  24. DEPAKOTE ER [Concomitant]
     Active Substance: DIVALPROEX SODIUM
     Dosage: 750 MG
     Route: 048
     Dates: start: 20200218, end: 20200227
  25. DEPAKOTE ER [Concomitant]
     Active Substance: DIVALPROEX SODIUM
     Dosage: 1000 MG
     Route: 048
     Dates: start: 20200228, end: 20200228
  26. PROPRANOLOL HYDROCHLORIDE [Concomitant]
     Active Substance: PROPRANOLOL HYDROCHLORIDE
     Indication: Psychotic symptom
     Dosage: 60 MG
     Route: 048
     Dates: start: 20200217, end: 20200220
  27. PROPRANOLOL HYDROCHLORIDE [Concomitant]
     Active Substance: PROPRANOLOL HYDROCHLORIDE
     Dosage: 80 MG
     Route: 048
     Dates: start: 20200221, end: 20200227
  28. PROPRANOLOL HYDROCHLORIDE [Concomitant]
     Active Substance: PROPRANOLOL HYDROCHLORIDE
     Dosage: 100 MG
     Route: 048
     Dates: start: 20200228
  29. RIVOTRIL [Concomitant]
     Active Substance: CLONAZEPAM
     Indication: Psychotic symptom
     Dosage: 0.5 MG
     Route: 048
     Dates: start: 20200301, end: 20200310
  30. RIVOTRIL [Concomitant]
     Active Substance: CLONAZEPAM
     Dosage: 1 MG
     Route: 048
     Dates: start: 20200311
  31. AMISULPRIDE [Concomitant]
     Active Substance: AMISULPRIDE
     Indication: Schizophrenia
     Dosage: 200 MG
     Route: 048
     Dates: start: 20200318, end: 20200319
  32. AMISULPRIDE [Concomitant]
     Active Substance: AMISULPRIDE
     Indication: Schizophrenia
     Dosage: 600 MG
     Route: 048
     Dates: start: 20200320, end: 20200320
  33. AMISULPRIDE [Concomitant]
     Active Substance: AMISULPRIDE
     Dosage: 800 MG
     Route: 048
     Dates: start: 20200321, end: 20200321
  34. AMISULPRIDE [Concomitant]
     Active Substance: AMISULPRIDE
     Dosage: 1800 MG
     Route: 048
     Dates: start: 20200322, end: 20200322
  35. AMISULPRIDE [Concomitant]
     Active Substance: AMISULPRIDE
     Dosage: 1200 MG
     Route: 048
     Dates: start: 20200323
  36. QUETIAPINE FUMARATE [Concomitant]
     Active Substance: QUETIAPINE FUMARATE
     Indication: Insomnia
     Dosage: 25 MG
     Route: 048
     Dates: start: 20200224, end: 20200224
  37. QUETIAPINE FUMARATE [Concomitant]
     Active Substance: QUETIAPINE FUMARATE
     Dosage: 50 MG
     Route: 048
     Dates: start: 20200225, end: 20200228
  38. QUETIAPINE FUMARATE [Concomitant]
     Active Substance: QUETIAPINE FUMARATE
     Dosage: 100 MG
     Route: 048
     Dates: start: 20200301, end: 20200301
  39. QUETIAPINE FUMARATE [Concomitant]
     Active Substance: QUETIAPINE FUMARATE
     Dosage: 150 MG
     Route: 048
     Dates: start: 20200302, end: 20200304
  40. QUETIAPINE FUMARATE [Concomitant]
     Active Substance: QUETIAPINE FUMARATE
     Dosage: 100 MG
     Route: 048
     Dates: start: 20200306, end: 20200311
  41. QUETIAPINE FUMARATE [Concomitant]
     Active Substance: QUETIAPINE FUMARATE
     Dosage: 100 MG
     Route: 048
     Dates: start: 20200313, end: 20200318
  42. QUETIAPINE FUMARATE [Concomitant]
     Active Substance: QUETIAPINE FUMARATE
     Dosage: 100 MG
     Route: 048
     Dates: start: 20200320, end: 20200320
  43. QUETIAPINE FUMARATE [Concomitant]
     Active Substance: QUETIAPINE FUMARATE
     Dosage: 100 MG
     Route: 048
     Dates: start: 20200323, end: 20200326
  44. QUETIAPINE FUMARATE [Concomitant]
     Active Substance: QUETIAPINE FUMARATE
     Dosage: 75 MG
     Route: 048
     Dates: start: 20200327, end: 20200328
  45. QUETIAPINE FUMARATE [Concomitant]
     Active Substance: QUETIAPINE FUMARATE
     Dosage: 50 MG
     Route: 048
     Dates: start: 20200329, end: 20200329
  46. QUETIAPINE FUMARATE [Concomitant]
     Active Substance: QUETIAPINE FUMARATE
     Dosage: 25 MG
     Route: 048
     Dates: start: 20200330
  47. SEROQUEL XR [Concomitant]
     Active Substance: QUETIAPINE FUMARATE
     Indication: Insomnia
     Dosage: 200 MG
     Route: 048
     Dates: start: 20200306, end: 20200308
  48. SEROQUEL XR [Concomitant]
     Active Substance: QUETIAPINE FUMARATE
     Dosage: 300 MG
     Route: 048
     Dates: start: 20200321, end: 20200322
  49. SEROQUEL XR [Concomitant]
     Active Substance: QUETIAPINE FUMARATE
     Indication: Insomnia
     Dosage: 300 MG
     Route: 048
     Dates: start: 20200305, end: 20200305
  50. SEROQUEL XR [Concomitant]
     Active Substance: QUETIAPINE FUMARATE
     Dosage: 300 MG
     Route: 048
     Dates: start: 20200309, end: 20200310
  51. SEROQUEL XR [Concomitant]
     Active Substance: QUETIAPINE FUMARATE
     Dosage: 300 MG
     Route: 048
     Dates: start: 20200320, end: 20200320
  52. SEROQUEL XR [Concomitant]
     Active Substance: QUETIAPINE FUMARATE
     Indication: Insomnia
     Dosage: 400 MG
     Route: 048
     Dates: start: 20200311, end: 20200311
  53. SEROQUEL XR [Concomitant]
     Active Substance: QUETIAPINE FUMARATE
     Dosage: 400 MG
     Route: 048
     Dates: start: 20200319, end: 20200319
  54. SEROQUEL XR [Concomitant]
     Active Substance: QUETIAPINE FUMARATE
     Indication: Insomnia
     Dosage: 500 MG
     Route: 048
     Dates: start: 20200312, end: 20200312
  55. SEROQUEL XR [Concomitant]
     Active Substance: QUETIAPINE FUMARATE
     Dosage: 500 MG
     Route: 048
     Dates: start: 20200317, end: 20200318
  56. SEROQUEL XR [Concomitant]
     Active Substance: QUETIAPINE FUMARATE
     Indication: Insomnia
     Dosage: 600 MG
     Route: 048
     Dates: start: 20200313, end: 20200316

REACTIONS (1)
  - Psychotic symptom [Recovered/Resolved]

NARRATIVE: CASE EVENT DATE: 20200215
